FAERS Safety Report 12106554 (Version 2)
Quarter: 2016Q1

REPORT INFORMATION
  Report Type: Report from Study
  Country: CA (occurrence: CA)
  Receive Date: 20160223
  Receipt Date: 20160330
  Transmission Date: 20160526
  Serious: No
  Sender: FDA-Public Use
  Company Number: CA-ABBVIE-16P-028-1564359-00

PATIENT
  Age: 51 Year
  Weight: 50.39 kg

DRUGS (2)
  1. HOLKIRA PAK [Suspect]
     Active Substance: DASABUVIR\OMBITASVIR\PARITAPREVIR\RITONAVIR
     Indication: CHRONIC HEPATITIS C
     Dosage: 12.5/75/50MG TABS 1 + 1 DASABUVIR 250MG TABS 2 A DAY
     Route: 048
     Dates: start: 20160121
  2. RIBAVIRIN. [Suspect]
     Active Substance: RIBAVIRIN
     Indication: CHRONIC HEPATITIS C
     Route: 048
     Dates: start: 20160121

REACTIONS (2)
  - Inflammation [Recovering/Resolving]
  - Thrombosed varicose vein [Not Recovered/Not Resolved]

NARRATIVE: CASE EVENT DATE: 20160212
